FAERS Safety Report 9564677 (Version 1)
Quarter: 2013Q3

REPORT INFORMATION
  Report Type: Spontaneous
  Country: US (occurrence: US)
  Receive Date: 20130930
  Receipt Date: 20130930
  Transmission Date: 20140515
  Serious: No
  Sender: FDA-Public Use
  Company Number: US-PFIZER INC-2013278375

PATIENT
  Age: 45 Year
  Sex: Female

DRUGS (6)
  1. PHENYTOIN [Suspect]
     Dosage: UNK
  2. LAMOTRIGINE [Suspect]
     Dosage: UNK
  3. LEVETIRACETAM [Suspect]
     Dosage: UNK
  4. PHENOBARBITAL [Suspect]
     Dosage: UNK
  5. VALPROIC ACID [Suspect]
     Dosage: UNK
  6. CARBAMAZEPINE [Suspect]
     Dosage: UNK

REACTIONS (1)
  - Drug ineffective [Unknown]
